FAERS Safety Report 24393046 (Version 1)
Quarter: 2024Q4

REPORT INFORMATION
  Report Type: Report from Study
  Country: US (occurrence: US)
  Receive Date: 20241003
  Receipt Date: 20241003
  Transmission Date: 20250114
  Serious: No
  Sender: SUNOVION
  Company Number: US-SUMITOMO PHARMA SWITZERLAND GMBH-2024SPA003392

PATIENT

DRUGS (1)
  1. ORGOVYX [Suspect]
     Active Substance: RELUGOLIX
     Indication: Gender dysphoria
     Dosage: 120 MG, QD
     Route: 048
     Dates: start: 20220827

REACTIONS (4)
  - Fungal infection [Unknown]
  - Pain [Unknown]
  - Incorrect dose administered [Unknown]
  - Off label use [Unknown]
